FAERS Safety Report 8297202-3 (Version None)
Quarter: 2012Q2

REPORT INFORMATION
  Report Type: 
  Country: None (occurrence: None)
  Receive Date: 20120419
  Receipt Date: 20120412
  Transmission Date: 20120825
  Serious: Yes (Hospitalization)
  Sender: FDA-Public Use
  Company Number: US-BAYER-2011-085063

PATIENT
  Age: 18 Year
  Sex: Female
  Weight: 72.562 kg

DRUGS (4)
  1. YASMIN [Suspect]
     Dosage: UNK
     Dates: start: 20040101, end: 20060101
  2. ZOLOFT [Concomitant]
     Dosage: UNK
     Dates: start: 20061006
  3. ZOFRAN [Concomitant]
  4. ASCORBIC ACID [Concomitant]
     Dosage: UNK UNK, QD

REACTIONS (3)
  - CHOLECYSTITIS CHRONIC [None]
  - GALLBLADDER DISORDER [None]
  - PAIN [None]
